FAERS Safety Report 7887841 (Version 4)
Quarter: 2013Q4

REPORT INFORMATION
  Report Type: Spontaneous
  Country: US (occurrence: US)
  Receive Date: 20110406
  Receipt Date: 20131119
  Transmission Date: 20140711
  Serious: Yes (Other)
  Sender: FDA-Public Use
  Company Number: US-BAYER-2011-028593

PATIENT
  Age: 34 Year
  Sex: Female
  Weight: 88.44 kg

DRUGS (14)
  1. YASMIN [Suspect]
     Indication: CONTRACEPTION
     Dosage: UNK
     Dates: start: 20051008, end: 200602
  2. YASMIN [Suspect]
     Indication: CONTRACEPTION
     Dosage: UNK
     Dates: start: 20080331, end: 20080726
  3. OCELLA [Suspect]
     Indication: CONTRACEPTION
     Dosage: UNK
     Dates: start: 20080727, end: 200911
  4. LIPITOR [Concomitant]
     Indication: BLOOD CHOLESTEROL INCREASED
     Dosage: 1 DF, QD
     Route: 048
     Dates: start: 2006
  5. DICYCLOMINE [Concomitant]
     Dosage: 20 MG, UNK
     Dates: start: 20091120, end: 20091216
  6. LEVAQUIN [Concomitant]
     Dosage: 500 MG, UNK
     Dates: start: 20091210
  7. PROPOXYPHENE HYDROCHLORIDE [Concomitant]
     Dosage: UNK
     Dates: start: 20091211
  8. OMEPRAZOLE [Concomitant]
     Dosage: UNK
     Dates: start: 20091211
  9. SUCRALFATE [Concomitant]
     Dosage: 1 G, UNK
     Dates: start: 20091216
  10. ADVIL [Concomitant]
     Dosage: 200 MG, UNK
     Dates: start: 20091216
  11. DARVOCET-N [Concomitant]
     Dosage: 100/650 MG
     Dates: start: 20091216
  12. MAALOX TC [Concomitant]
     Dosage: UNK
     Dates: start: 20091216
  13. BENTYL [Concomitant]
     Dosage: UNK
     Dates: start: 20091231
  14. CARAFATE [Concomitant]
     Dosage: UNK
     Dates: start: 20091231

REACTIONS (7)
  - Gallbladder disorder [None]
  - Cholecystitis chronic [None]
  - Biliary dyskinesia [None]
  - Injury [None]
  - Pain [None]
  - Anxiety [None]
  - Anhedonia [None]
